FAERS Safety Report 7981552-1 (Version None)
Quarter: 2011Q4

REPORT INFORMATION
  Report Type: 
  Country: None (occurrence: None)
  Receive Date: 20111215
  Receipt Date: 20111213
  Transmission Date: 20120403
  Serious: Yes (Other)
  Sender: FDA-Public Use
  Company Number: VE-PFIZER INC-2011296530

PATIENT
  Age: 71 Year
  Sex: Female

DRUGS (1)
  1. NEURONTIN [Suspect]
     Indication: HERPES ZOSTER
     Dosage: 300 MG, 1X/DAY
     Route: 048
     Dates: start: 20110801, end: 20111125

REACTIONS (4)
  - AMNESIA [None]
  - VERTIGO [None]
  - FEELING ABNORMAL [None]
  - HYPERTENSION [None]
